FAERS Safety Report 4979741-3 (Version None)
Quarter: 2006Q1

REPORT INFORMATION
  Report Type: 
  Country: None (occurrence: None)
  Receive Date: 20060216
  Receipt Date: 20051209
  Transmission Date: 20060701
  Serious: No
  Sender: FDA-Public Use
  Company Number: TPA2005A01431

PATIENT
  Age: 45 Year
  Sex: Male

DRUGS (5)
  1. ROZEREM [Suspect]
     Indication: INSOMNIA
     Dosage: 8 MG, PER ORAL
     Route: 048
     Dates: start: 20051010, end: 20051011
  2. UNKNOWN HYPERTENSIVE MEDICATION (ANTIHYPERTENSIVES) [Concomitant]
  3. AVAPRO [Concomitant]
  4. ATENOLOL [Concomitant]
  5. LEXAPRO [Concomitant]

REACTIONS (1)
  - HALLUCINATION [None]
